FAERS Safety Report 6593273-0 (Version None)
Quarter: 2010Q1

REPORT INFORMATION
  Report Type: 
  Country: None (occurrence: None)
  Receive Date: 20100222
  Receipt Date: 20100209
  Transmission Date: 20100710
  Serious: Yes (Other)
  Sender: FDA-Public Use
  Company Number: GB-GENZYME-CLOF-1000822

PATIENT
  Sex: Male

DRUGS (22)
  1. EVOLTRA [Suspect]
     Indication: ACUTE MYELOID LEUKAEMIA
     Dosage: 40 MG, QDX5
     Route: 042
     Dates: start: 20091210, end: 20091214
  2. DAUNORUBICIN HCL [Suspect]
     Indication: ACUTE MYELOID LEUKAEMIA
     Dosage: 100 MG, QDX5
     Route: 042
     Dates: start: 20091210, end: 20091214
  3. MYLOTARG [Suspect]
     Indication: ACUTE MYELOID LEUKAEMIA
     Dosage: 6 MG, QDX5
     Route: 042
     Dates: start: 20091210, end: 20091214
  4. ACYCLOVIR [Concomitant]
     Indication: ANTIVIRAL PROPHYLAXIS
     Dosage: 400 MG, BID
     Route: 065
     Dates: start: 20091208, end: 20091220
  5. ACYCLOVIR [Concomitant]
     Dosage: 250 MG, BID
     Route: 042
     Dates: start: 20091220, end: 20091231
  6. FLUCONAZOLE [Concomitant]
     Indication: ANTIFUNGAL PROPHYLAXIS
     Dosage: 100 MG, QD
     Route: 065
     Dates: start: 20091208, end: 20091220
  7. ALLOPURINOL [Concomitant]
     Indication: PROPHYLAXIS
     Dosage: 300 MG, QD
     Route: 065
     Dates: start: 20091208, end: 20091220
  8. OMEPRAZOL [Concomitant]
     Indication: DRUG USE FOR UNKNOWN INDICATION
     Dosage: 20 MG, QD
     Route: 065
     Dates: start: 20091208, end: 20091220
  9. ONDANSETRON [Concomitant]
     Indication: NAUSEA
     Dosage: 8 MG, BID
     Route: 065
     Dates: start: 20091210, end: 20091220
  10. CYCLIZINE [Concomitant]
     Indication: NAUSEA
     Dosage: 50 MG, TID
     Route: 065
     Dates: start: 20091210, end: 20091223
  11. MEROPENEM [Concomitant]
     Indication: ANTIBIOTIC THERAPY
     Dosage: 1 G, TID
     Route: 065
     Dates: start: 20091218, end: 20091229
  12. PANTOPRAZOLE [Concomitant]
     Indication: DRUG USE FOR UNKNOWN INDICATION
     Dosage: 40 MG, QD
     Route: 042
     Dates: start: 20091220, end: 20091231
  13. CODEINE SULFATE [Concomitant]
     Indication: DIARRHOEA
     Dosage: 60 MG, QD
     Route: 065
     Dates: start: 20091212, end: 20091212
  14. ORAMORPH SR [Concomitant]
     Indication: PAIN
     Dosage: 5 MG, QD
     Route: 065
     Dates: start: 20091213, end: 20091213
  15. LINEZOLID [Concomitant]
     Indication: ENTEROCOCCAL INFECTION
     Dosage: 600 MG, BID
     Route: 042
     Dates: start: 20091223, end: 20100107
  16. LINEZOLID [Concomitant]
     Dosage: 600 MG, BID
     Route: 042
     Dates: start: 20100116, end: 20100122
  17. VORICONAZOLE [Concomitant]
     Indication: ANTIFUNGAL PROPHYLAXIS
     Dosage: 200 MG, BID
     Route: 042
     Dates: start: 20091223, end: 20091230
  18. PARACETAMOL [Concomitant]
     Indication: PYREXIA
     Dosage: 1 G, QID
     Route: 042
     Dates: start: 20091226, end: 20091230
  19. PARACETAMOL [Concomitant]
     Dosage: 1 G, QID
     Route: 048
     Dates: start: 20091226, end: 20091230
  20. LENOGRASTIM [Concomitant]
     Indication: NEUTROPENIA
     Dosage: 263 MCG, QD
     Route: 065
     Dates: start: 20091223
  21. TPN ELECTROLYTES IN PLASTIC CONTAINER [Concomitant]
     Indication: DRUG USE FOR UNKNOWN INDICATION
     Dosage: UNK UNK, UNK
     Route: 065
     Dates: start: 20091224, end: 20100104
  22. FUROSEMIDE [Concomitant]
     Indication: DIURETIC THERAPY
     Dosage: 20 MG, BID
     Route: 042
     Dates: start: 20091227, end: 20100110

REACTIONS (3)
  - HYPERBILIRUBINAEMIA [None]
  - NEUTROPENIA [None]
  - THROMBOCYTOPENIA [None]
